FAERS Safety Report 6826236-8 (Version None)
Quarter: 2010Q3

REPORT INFORMATION
  Report Type: 
  Country: None (occurrence: None)
  Receive Date: 20100709
  Receipt Date: 20100624
  Transmission Date: 20110219
  Serious: Yes (Hospitalization, Other)
  Sender: FDA-Public Use
  Company Number: PHHY2010JP39631

PATIENT
  Age: 77 Year
  Sex: Male

DRUGS (1)
  1. GLEEVEC [Suspect]
     Indication: CHRONIC MYELOID LEUKAEMIA
     Route: 065

REACTIONS (7)
  - AZOTAEMIA [None]
  - BLADDER CANCER [None]
  - BLADDER NEOPLASM SURGERY [None]
  - FLUID RETENTION [None]
  - GENERALISED OEDEMA [None]
  - NEOPLASM MALIGNANT [None]
  - RENAL FAILURE CHRONIC [None]
